FAERS Safety Report 25141049 (Version 1)
Quarter: 2025Q2

REPORT INFORMATION
  Report Type: Spontaneous
  Country: US (occurrence: None)
  Receive Date: 20250330
  Receipt Date: 20250330
  Transmission Date: 20250716
  Serious: Yes (Life-Threatening, Hospitalization, Other)
  Sender: FDA-CTU
  Company Number: None

PATIENT
  Age: 56 Year
  Sex: Female
  Weight: 85.05 kg

DRUGS (7)
  1. ADVIL COLD AND SINUS [Suspect]
     Active Substance: IBUPROFEN\PSEUDOEPHEDRINE HYDROCHLORIDE
     Indication: Sinus congestion
  2. .DELTA.9-TETRAHYDROCANNABINOL\HERBALS [Suspect]
     Active Substance: .DELTA.9-TETRAHYDROCANNABINOL\HERBALS
     Indication: Sleep disorder
     Dosage: 10 MG AT BEDTIME ORAL
     Route: 048
  3. Ammo Findell [Concomitant]
  4. Sunsosi [Concomitant]
  5. PROZAC [Concomitant]
     Active Substance: FLUOXETINE HYDROCHLORIDE
  6. PEPCID [Concomitant]
     Active Substance: FAMOTIDINE
  7. VITAMIN C [Concomitant]
     Active Substance: ASCORBIC ACID

REACTIONS (7)
  - Drug interaction [None]
  - Vomiting [None]
  - Urinary incontinence [None]
  - Loss of consciousness [None]
  - Unresponsive to stimuli [None]
  - Drug level increased [None]
  - Product communication issue [None]

NARRATIVE: CASE EVENT DATE: 20250326
